FAERS Safety Report 8321311-3 (Version None)
Quarter: 2012Q2

REPORT INFORMATION
  Report Type: 
  Country: None (occurrence: None)
  Receive Date: 20120430
  Receipt Date: 20120418
  Transmission Date: 20120825
  Serious: Yes (Hospitalization, Other)
  Sender: FDA-Public Use
  Company Number: ZA-JNJFOC-20120408718

PATIENT
  Age: 80 Year
  Sex: Female

DRUGS (1)
  1. LISTERINE TOTAL CARE [Suspect]
     Indication: PRODUCT USED FOR UNKNOWN INDICATION
     Route: 002

REACTIONS (4)
  - DIZZINESS [None]
  - PALLOR [None]
  - ACCIDENTAL EXPOSURE [None]
  - FEAR [None]
